FAERS Safety Report 10141727 (Version 2)
Quarter: 2014Q2

REPORT INFORMATION
  Report Type: Spontaneous
  Country: US (occurrence: US)
  Receive Date: 20140429
  Receipt Date: 20140429
  Transmission Date: 20141212
  Serious: No
  Sender: FDA-Public Use
  Company Number: US-MYLANLABS-2014S1004448

PATIENT
  Sex: Female
  Weight: 68.04 kg

DRUGS (2)
  1. LORAZEPAM TABLETS, USP [Suspect]
     Indication: ANXIETY
     Route: 048
     Dates: start: 1993, end: 2003
  2. LORAZEPAM TABLETS, USP [Suspect]
     Indication: PAIN
     Route: 048
     Dates: start: 1993, end: 2003

REACTIONS (3)
  - Drug ineffective [Recovered/Resolved]
  - Anxiety [Recovered/Resolved]
  - False negative investigation result [Recovered/Resolved]
